FAERS Safety Report 25944643 (Version 1)
Quarter: 2025Q4

REPORT INFORMATION
  Report Type: Spontaneous
  Country: US (occurrence: US)
  Receive Date: 20251021
  Receipt Date: 20251021
  Transmission Date: 20260117
  Serious: Yes (Other)
  Sender: PFIZER
  Company Number: US-PFIZER INC-202500204770

PATIENT
  Age: 58 Year
  Sex: Male

DRUGS (1)
  1. FENTANYL CITRATE [Suspect]
     Active Substance: FENTANYL CITRATE
     Dosage: UNK

REACTIONS (8)
  - Rib fracture [Unknown]
  - Eye contusion [Unknown]
  - Joint injury [Unknown]
  - Pain [Unknown]
  - Fatigue [Unknown]
  - Poor quality sleep [Unknown]
  - Feeling abnormal [Unknown]
  - Victim of homicide [Unknown]

NARRATIVE: CASE EVENT DATE: 20240101
